FAERS Safety Report 23278679 (Version 1)
Quarter: 2023Q4

REPORT INFORMATION
  Report Type: Spontaneous
  Country: DE (occurrence: DE)
  Receive Date: 20231208
  Receipt Date: 20231208
  Transmission Date: 20240110
  Serious: No
  Sender: FDA-Public Use
  Company Number: DE-INCYTE CORPORATION-2023IN010881

PATIENT

DRUGS (1)
  1. OPZELURA [Suspect]
     Active Substance: RUXOLITINIB PHOSPHATE
     Dosage: UNK
     Route: 065
     Dates: start: 202305

REACTIONS (3)
  - Sleep disorder [Unknown]
  - Night sweats [Unknown]
  - Skin disorder [Unknown]
